FAERS Safety Report 5194685-2 (Version None)
Quarter: 2006Q4

REPORT INFORMATION
  Report Type: 
  Country: None (occurrence: None)
  Receive Date: 20061229
  Receipt Date: 20060822
  Transmission Date: 20070319
  Serious: Yes (Other)
  Sender: FDA-Public Use
  Company Number: PHEH2006US10835

PATIENT
  Age: 54 Year
  Sex: Female

DRUGS (5)
  1. ZOMETA [Suspect]
     Indication: METASTASES TO BONE
     Dosage: 4 MG MONTHLY
     Dates: start: 20040310, end: 20050516
  2. HERCEPTIN [Concomitant]
     Dosage: 168 MG WEEKLY
     Dates: start: 20050516
  3. TAXOTERE [Concomitant]
     Dosage: 47 MG WEEKLY
     Dates: start: 20060605
  4. DEXAMETHASONE [Concomitant]
     Indication: PROPHYLAXIS
     Dosage: 10 MG WEEKLY
     Dates: start: 20060605
  5. PERIDEX [Concomitant]
     Dosage: BID

REACTIONS (13)
  - BACTERIAL INFECTION [None]
  - BONE DISORDER [None]
  - DENTAL CARIES [None]
  - GINGIVAL PAIN [None]
  - GINGIVITIS [None]
  - IMPAIRED HEALING [None]
  - INFLAMMATION [None]
  - ORAL SOFT TISSUE DISORDER [None]
  - OSTEOMYELITIS [None]
  - OSTEONECROSIS [None]
  - PRIMARY SEQUESTRUM [None]
  - PURULENT DISCHARGE [None]
  - TOOTH EXTRACTION [None]
